FAERS Safety Report 12945678 (Version 1)
Quarter: 2016Q4

REPORT INFORMATION
  Report Type: Spontaneous
  Country: US (occurrence: US)
  Receive Date: 20161116
  Receipt Date: 20161116
  Transmission Date: 20170207
  Serious: No
  Sender: FDA-Public Use
  Company Number: US-009507513-1611USA003954

PATIENT
  Sex: Female
  Weight: 62.59 kg

DRUGS (3)
  1. NEXPLANON [Suspect]
     Active Substance: ETONOGESTREL
     Indication: MENSTRUATION NORMAL
  2. NEXPLANON [Suspect]
     Active Substance: ETONOGESTREL
     Indication: CONTRACEPTION
     Dosage: LEFT ARM
     Dates: start: 20160425
  3. ALLEGRA [Concomitant]
     Active Substance: FEXOFENADINE HYDROCHLORIDE

REACTIONS (5)
  - Abdominal distension [Unknown]
  - Menstruation irregular [Unknown]
  - Maternal exposure before pregnancy [Unknown]
  - Amenorrhoea [Unknown]
  - Gastrooesophageal reflux disease [Unknown]
